FAERS Safety Report 25350138 (Version 1)
Quarter: 2025Q2

REPORT INFORMATION
  Report Type: Report from Study
  Country: US (occurrence: US)
  Receive Date: 20250523
  Receipt Date: 20250523
  Transmission Date: 20250717
  Serious: Yes (Hospitalization)
  Sender: ACADIA PHARMACEUTICALS
  Company Number: US-ACADIA PHARMACEUTICALS INC.-ACA-2025-ACP-005816

PATIENT
  Age: 11 Year
  Sex: Female
  Weight: 40 kg

DRUGS (13)
  1. TROFINETIDE [Suspect]
     Active Substance: TROFINETIDE
     Indication: Rett syndrome
     Dosage: 40 MILLILITER, BID
     Route: 065
     Dates: start: 20230517, end: 20231013
  2. VITAMIN D3 [Concomitant]
     Active Substance: CHOLECALCIFEROL
     Indication: Prophylaxis
     Dosage: 500 MICROGRAM, QD
     Route: 048
     Dates: start: 20180621
  3. KLONOPIN [Concomitant]
     Active Substance: CLONAZEPAM
     Indication: Seizure
     Route: 048
     Dates: start: 20210331
  4. DIASTAT [Concomitant]
     Active Substance: DIAZEPAM
     Indication: Seizure
     Route: 054
     Dates: start: 20220228
  5. DEPAKOTE [Concomitant]
     Active Substance: DIVALPROEX SODIUM
     Indication: Seizure
     Dosage: 250 MILLIGRAM, QD
     Route: 033
     Dates: start: 20220121
  6. FELBATOL [Concomitant]
     Active Substance: FELBAMATE
     Indication: Seizure
     Dosage: 15 MILLILITER, TID, 6ML IN MORNING, 5ML POST LUNCH, 5ML PRE DINNER
     Route: 033
     Dates: start: 20220826
  7. FOLVITE [Concomitant]
     Active Substance: FOLIC ACID
     Indication: Vitamin supplementation
     Dosage: 2 MILLIGRAM, BID
     Route: 048
     Dates: start: 20220121
  8. IMODIUM [LOPERAMIDE] [Concomitant]
     Indication: Diarrhoea
     Dosage: 2 MILLIGRAM, BID
     Route: 048
     Dates: start: 202306, end: 20231023
  9. CARNITOR [Concomitant]
     Active Substance: LEVOCARNITINE
     Indication: Carnitine deficiency
     Dosage: 680 MILLIGRAM, BID
     Route: 048
  10. MELATONIN [Concomitant]
     Active Substance: MELATONIN
     Indication: Sleep disorder
     Dosage: 1 MILLIGRAM, QD
     Route: 048
  11. PYRIDOXINE [Concomitant]
     Active Substance: PYRIDOXINE
     Indication: Abnormal behaviour
     Dosage: 100 MILLIGRAM, QD
     Route: 048
     Dates: start: 20170203
  12. SIMETHICONE (DIMETHICONE) [Concomitant]
     Active Substance: DIMETHICONE
     Indication: Flatulence
     Route: 048
     Dates: start: 2021
  13. ROBINUL [Concomitant]
     Active Substance: GLYCOPYRROLATE
     Indication: Saliva altered
     Dosage: 0.5 MILLIGRAM, QD
     Route: 048
     Dates: start: 20220113

REACTIONS (1)
  - Pneumonia [Recovered/Resolved]

NARRATIVE: CASE EVENT DATE: 20231012
